FAERS Safety Report 4824001-4 (Version None)
Quarter: 2005Q4

REPORT INFORMATION
  Report Type: 
  Country: None (occurrence: None)
  Receive Date: 20051108
  Receipt Date: 20051020
  Transmission Date: 20060501
  Serious: Yes (Hospitalization)
  Sender: FDA-Public Use
  Company Number: USA0508106164

PATIENT
  Age: 46 Year
  Sex: Male

DRUGS (6)
  1. CYMBALTA [Suspect]
     Indication: NEUROPATHY
     Dosage: 60 MG
     Dates: start: 20050818
  2. ACTOS [Concomitant]
  3. LISINOPRIL  W/HYDROCHLOROTHIAZIDE [Concomitant]
  4. GLYBURIDE W/METFORMIN HYDROCHLORIDE [Concomitant]
  5. LASIX [Concomitant]
  6. NEURONTIN [Concomitant]

REACTIONS (4)
  - DEHYDRATION [None]
  - NAUSEA [None]
  - RENAL FAILURE ACUTE [None]
  - VOMITING [None]
